FAERS Safety Report 21183986 (Version 3)
Quarter: 2022Q3

REPORT INFORMATION
  Report Type: Spontaneous
  Country: JP (occurrence: JP)
  Receive Date: 20220808
  Receipt Date: 20220915
  Transmission Date: 20221026
  Serious: Yes (Other)
  Sender: FDA-Public Use
  Company Number: JP-ASTELLAS-2022JP011976

PATIENT
  Age: 54 Year
  Sex: Female

DRUGS (5)
  1. XOSPATA [Suspect]
     Active Substance: GILTERITINIB
     Indication: Acute myeloid leukaemia
     Dosage: 120 MG/DAY, UNKNOWN FREQ.
     Route: 048
  2. XOSPATA [Suspect]
     Active Substance: GILTERITINIB
     Dosage: UNK UNK, UNKNOWN FREQ.
     Route: 048
  3. METFORMIN HYDROCHLORIDE [Concomitant]
     Active Substance: METFORMIN HYDROCHLORIDE
     Indication: Product used for unknown indication
     Route: 065
  4. METFORMIN HYDROCHLORIDE [Concomitant]
     Active Substance: METFORMIN HYDROCHLORIDE
     Route: 065
  5. HYDROCORTISONE [Concomitant]
     Active Substance: HYDROCORTISONE
     Indication: Adrenal insufficiency
     Route: 065

REACTIONS (4)
  - Adrenal insufficiency [Recovering/Resolving]
  - Growth hormone deficiency [Recovering/Resolving]
  - Hyperglycaemia [Recovering/Resolving]
  - Hypogonadism [Unknown]
